FAERS Safety Report 14659243 (Version 3)
Quarter: 2025Q3

REPORT INFORMATION
  Report Type: Spontaneous
  Country: KR (occurrence: KR)
  Receive Date: 20180320
  Receipt Date: 20250819
  Transmission Date: 20251021
  Serious: Yes (Hospitalization, Other)
  Sender: MERCK SHARP & DOHME LLC
  Company Number: KR-009507513-1511KOR006975

PATIENT
  Age: 56 Year
  Sex: Male
  Weight: 72.7 kg

DRUGS (1)
  1. POSACONAZOLE [Suspect]
     Active Substance: POSACONAZOLE
     Indication: Antifungal prophylaxis
     Dosage: DOSE DESCRIPTION : 200 MG 3 TIMES DAILY?DAILY DOSE : 600 MILLIGRAM?REGIMEN DOSE : 13800  MILLIGRAM
     Route: 048
     Dates: start: 20140128, end: 20140219

REACTIONS (3)
  - Systemic mycosis [Recovered/Resolved]
  - Infection [Recovered/Resolved]
  - Drug ineffective [Unknown]

NARRATIVE: CASE EVENT DATE: 20140219
